FAERS Safety Report 7544077-3 (Version None)
Quarter: 2011Q2

REPORT INFORMATION
  Report Type: 
  Country: None (occurrence: None)
  Receive Date: 20110613
  Receipt Date: 20060130
  Transmission Date: 20111010
  Serious: Yes (Hospitalization)
  Sender: FDA-Public Use
  Company Number: PHFR2006GB00705

PATIENT
  Sex: Female

DRUGS (1)
  1. CLOZAPINE [Suspect]
     Indication: SCHIZOPHRENIA
     Dates: start: 19921203

REACTIONS (10)
  - VOMITING [None]
  - ACUTE ABDOMEN [None]
  - HYPOTENSION [None]
  - GRAM STAIN POSITIVE [None]
  - INTESTINAL PERFORATION [None]
  - WHITE BLOOD CELL COUNT INCREASED [None]
  - PYREXIA [None]
  - LOSS OF CONSCIOUSNESS [None]
  - INTESTINAL OBSTRUCTION [None]
  - DIARRHOEA [None]
